FAERS Safety Report 8758569 (Version 1)
Quarter: 2012Q4

REPORT INFORMATION
  Report Type: Spontaneous
  Country: US (occurrence: None)
  Receive Date: 20120828
  Receipt Date: 20120828
  Transmission Date: 20130627
  Serious: Yes (Hospitalization)
  Sender: FDA-Public Use
  Company Number: None

PATIENT
  Age: 74 Year
  Sex: Female
  Weight: 102.97 kg

DRUGS (1)
  1. DEPAKOTE [Suspect]
     Route: 048

REACTIONS (1)
  - Hyponatraemia [None]
